FAERS Safety Report 10592414 (Version 2)
Quarter: 2014Q4

REPORT INFORMATION
  Report Type: Spontaneous
  Country: US (occurrence: None)
  Receive Date: 20141117
  Receipt Date: 20141204
  Transmission Date: 20150529
  Serious: Yes (Other)
  Sender: FDA-Public Use
  Company Number: 2014-US-014634

PATIENT
  Sex: Female
  Weight: 127 kg

DRUGS (10)
  1. LISINOPRIL. [Concomitant]
     Active Substance: LISINOPRIL
  2. CAFFEINE (CAFFEINE) [Concomitant]
     Active Substance: CAFFEINE
  3. CRESTOR [Concomitant]
     Active Substance: ROSUVASTATIN CALCIUM
  4. XYREM [Suspect]
     Active Substance: SODIUM OXYBATE
     Indication: CATAPLEXY
     Route: 048
     Dates: start: 200304
  5. ALLOPURINOL. [Concomitant]
     Active Substance: ALLOPURINOL
  6. XYREM [Suspect]
     Active Substance: SODIUM OXYBATE
     Indication: NARCOLEPSY
     Route: 048
     Dates: start: 200304
  7. ZOLOFT [Concomitant]
     Active Substance: SERTRALINE HYDROCHLORIDE
  8. METHYLPHENIDATE (METHYLPHENIDATE HYDROCHLORIDE) [Concomitant]
  9. MELOXICAM. [Concomitant]
     Active Substance: MELOXICAM
  10. NAPROXEN (NAPROXEN SODIUM) [Concomitant]

REACTIONS (1)
  - Diabetes mellitus [None]
